FAERS Safety Report 16577340 (Version 1)
Quarter: 2019Q3

REPORT INFORMATION
  Report Type: Spontaneous
  Country: NL (occurrence: NL)
  Receive Date: 20190716
  Receipt Date: 20190716
  Transmission Date: 20191004
  Serious: Yes (Other)
  Sender: FDA-Public Use
  Company Number: NL-TEVA-2019-NL-1077460

PATIENT
  Age: 68 Year
  Sex: Female
  Weight: 79 kg

DRUGS (6)
  1. METOPROLOL 50MG [Concomitant]
     Active Substance: METOPROLOL
     Dosage: 50 MILLIGRAM DAILY; 1DD50MG
  2. CLOPIDOGREL [Concomitant]
     Active Substance: CLOPIDOGREL BISULFATE
     Dosage: 75 MILLIGRAM DAILY; 1DD75MG
  3. LEVOTHYROXINE 25MCG [Concomitant]
     Active Substance: LEVOTHYROXINE
     Dosage: 100 MICROGRAM DAILY; 1DD4
  4. ATORVASTATINE TABLET, 80 MG (MILLIGRAM) [Suspect]
     Active Substance: ATORVASTATIN
     Indication: HYPERCHOLESTEROLAEMIA
     Dosage: 80 MILLIGRAM DAILY;
     Dates: start: 20190124
  5. HYDROCHLOROTHIAZIDE 12.5 MG [Concomitant]
     Active Substance: HYDROCHLOROTHIAZIDE
     Dosage: 12 MILLIGRAM DAILY; 1DD12,5MG
  6. METFORMINE 1000MG [Concomitant]
     Dosage: 1000 MILLIGRAM, 12 HOURS, 2DD1

REACTIONS (3)
  - Memory impairment [Recovered/Resolved]
  - Decreased activity [Recovered/Resolved]
  - Malaise [Recovered/Resolved]

NARRATIVE: CASE EVENT DATE: 20190520
